FAERS Safety Report 10100829 (Version 2)
Quarter: 2014Q3

REPORT INFORMATION
  Report Type: Spontaneous
  Country: IT (occurrence: IT)
  Receive Date: 20140423
  Receipt Date: 20140721
  Transmission Date: 20150326
  Serious: Yes (Hospitalization)
  Sender: FDA-Public Use
  Company Number: IT-B.I. PHARMACEUTICALS,INC./RIDGEFIELD-2014-BI-17730IT

PATIENT
  Age: 89 Year
  Sex: Female

DRUGS (7)
  1. CARDIOASPIRIN [Concomitant]
     Active Substance: ASPIRIN
     Route: 048
  2. LASIX [Concomitant]
     Active Substance: FUROSEMIDE
     Route: 048
  3. PLAUNAC [Concomitant]
     Active Substance: OLMESARTAN MEDOXOMIL
     Route: 048
  4. TRITTICO [Concomitant]
     Active Substance: TRAZODONE HYDROCHLORIDE
     Route: 048
  5. PRADAXA [Suspect]
     Active Substance: DABIGATRAN ETEXILATE MESYLATE
     Indication: ATRIAL FIBRILLATION
     Dosage: 220 MG
     Route: 048
     Dates: start: 20130901, end: 20140401
  6. LUVION [Concomitant]
     Active Substance: CANRENONE
     Route: 048
  7. TAVOR [Concomitant]
     Active Substance: LORAZEPAM
     Route: 048

REACTIONS (4)
  - Rectal haemorrhage [Recovered/Resolved]
  - Hypovolaemic shock [Recovered/Resolved]
  - Melaena [Recovered/Resolved]
  - Anaemia [Recovered/Resolved]

NARRATIVE: CASE EVENT DATE: 20140330
